FAERS Safety Report 5430983-2 (Version None)
Quarter: 2007Q3

REPORT INFORMATION
  Report Type: 
  Country: None (occurrence: None)
  Receive Date: 20070830
  Receipt Date: 20070824
  Transmission Date: 20080115
  Serious: Yes (Death, Hospitalization)
  Sender: FDA-Public Use
  Company Number: B0423601B

PATIENT
  Age: 39 Year
  Sex: Female

DRUGS (5)
  1. LAMOTRIGINE [Suspect]
     Indication: PARTIAL SEIZURES
     Dosage: 50MG PER DAY
     Route: 048
     Dates: start: 20051019
  2. DIAZEPAM [Concomitant]
     Route: 030
     Dates: start: 20060624, end: 20060624
  3. RANTAC [Concomitant]
     Indication: GASTRITIS
     Dosage: 150MG TWICE PER DAY
     Route: 042
     Dates: start: 20060624, end: 20060624
  4. FLUIDS [Concomitant]
     Route: 042
     Dates: start: 20060624, end: 20060625
  5. CARBAMAZEPINE [Concomitant]

REACTIONS (5)
  - ASPIRATION [None]
  - CARDIAC ARREST [None]
  - GRAND MAL CONVULSION [None]
  - PYREXIA [None]
  - VOMITING [None]
